FAERS Safety Report 5298002-9 (Version None)
Quarter: 2007Q2

REPORT INFORMATION
  Report Type: 
  Country: None (occurrence: None)
  Receive Date: 20070416
  Receipt Date: 20070405
  Transmission Date: 20071010
  Serious: Yes (Hospitalization)
  Sender: FDA-Public Use
  Company Number: HQWYE782205APR07

PATIENT
  Age: 32 Year
  Sex: Female

DRUGS (1)
  1. AVLOCARDYL [Suspect]
     Indication: MIGRAINE
     Route: 048
     Dates: start: 20070105, end: 20070112

REACTIONS (3)
  - MALAISE [None]
  - SINUS BRADYCARDIA [None]
  - SYNCOPE [None]
